FAERS Safety Report 15256972 (Version 2)
Quarter: 2018Q3

REPORT INFORMATION
  Report Type: Spontaneous
  Country: FR (occurrence: FR)
  Receive Date: 20180808
  Receipt Date: 20180914
  Transmission Date: 20181010
  Serious: Yes (Other)
  Sender: FDA-Public Use
  Company Number: FR-BIOVERATIV-2018BV000540

PATIENT
  Age: 6 Year
  Sex: Female
  Weight: 25 kg

DRUGS (4)
  1. ELOCTA [Suspect]
     Active Substance: EFMOROCTOCOG ALFA
     Route: 042
     Dates: end: 201808
  2. FACTOR VII [Concomitant]
     Active Substance: COAGULATION FACTOR VII HUMAN
     Dosage: CIRCULATING FACTOR VII AT 22%
     Route: 065
  3. ELOCTA [Suspect]
     Active Substance: EFMOROCTOCOG ALFA
     Indication: FACTOR VIII DEFICIENCY
     Route: 065
  4. ELOCTA [Suspect]
     Active Substance: EFMOROCTOCOG ALFA
     Route: 042
     Dates: start: 20161219, end: 20180717

REACTIONS (5)
  - Drug effect decreased [Recovered/Resolved with Sequelae]
  - Haemorrhage [Unknown]
  - Haemarthrosis [Unknown]
  - Contusion [Unknown]
  - Joint swelling [Unknown]

NARRATIVE: CASE EVENT DATE: 20171009
